FAERS Safety Report 23850656 (Version 1)
Quarter: 2024Q2

REPORT INFORMATION
  Report Type: Spontaneous
  Country: EG (occurrence: EG)
  Receive Date: 20240513
  Receipt Date: 20240513
  Transmission Date: 20240716
  Serious: Yes (Hospitalization, Other)
  Sender: FDA-Public Use
  Company Number: EG-HIKMA PHARMACEUTICALS USA INC.-EG-H14001-24-04005

PATIENT
  Age: 75 Year
  Sex: Female
  Weight: 62 kg

DRUGS (6)
  1. DEXAMETHASONE [Suspect]
     Active Substance: DEXAMETHASONE
     Indication: Plasma cell myeloma
     Dosage: 40 MILLIGRAM, ON DAY ONE, EIGHT, 15 AND 22, REPEATED EVERY 28 DAYS
     Route: 065
  2. DEXAMETHASONE [Suspect]
     Active Substance: DEXAMETHASONE
     Dosage: 40 MILLIGRAM, ON DAY ONE, EIGHT, 15 AND 22, REPEATED EVERY 28 DAYS
     Route: 065
     Dates: start: 20240309
  3. CYCLOPHOSPHAMIDE [Suspect]
     Active Substance: CYCLOPHOSPHAMIDE
     Indication: Plasma cell myeloma
     Dosage: 480 MILLIGRAM, ON DAYS ONE, EIGHT, 15 AND 22, REPEATED EVERY 28 DAYS
     Route: 065
  4. CYCLOPHOSPHAMIDE [Suspect]
     Active Substance: CYCLOPHOSPHAMIDE
     Dosage: 480 MILLIGRAM, ON DAYS ONE, EIGHT, 15 AND 22, REPEATED EVERY 28 DAYS
     Route: 065
     Dates: start: 20240309
  5. VELCADE [Suspect]
     Active Substance: BORTEZOMIB
     Indication: Plasma cell myeloma
     Dosage: 3.5 MILLIGRAM, ON DAYS ONE, EIGHT, 15 AND 22, REPEATED EVERY 28 DAYS
     Route: 058
  6. VELCADE [Suspect]
     Active Substance: BORTEZOMIB
     Dosage: 3.5 MILLIGRAM, ON DAYS ONE, EIGHT, 15 AND 22, REPEATED EVERY 28 DAYS
     Route: 058
     Dates: start: 20240309

REACTIONS (1)
  - Anaemia [Unknown]

NARRATIVE: CASE EVENT DATE: 20240314
